FAERS Safety Report 6319624-X (Version None)
Quarter: 2009Q3

REPORT INFORMATION
  Report Type: 
  Country: None (occurrence: None)
  Receive Date: 20090822
  Receipt Date: 20081001
  Transmission Date: 20100115
  Serious: No
  Sender: FDA-Public Use
  Company Number: US-ABBOTT-08P-163-0479187-00

PATIENT
  Sex: Male

DRUGS (15)
  1. NIASPAN [Suspect]
     Indication: DRUG USE FOR UNKNOWN INDICATION
     Dates: start: 20080717, end: 20080917
  2. NIASPAN [Suspect]
     Dates: start: 20080918
  3. INSULIN LISPRO [Concomitant]
     Indication: DRUG USE FOR UNKNOWN INDICATION
  4. LANTUS [Concomitant]
     Indication: DRUG USE FOR UNKNOWN INDICATION
  5. SIMVASTATIN [Concomitant]
     Indication: DRUG USE FOR UNKNOWN INDICATION
  6. OMEPRAZOLE SODIUM [Concomitant]
     Indication: DRUG USE FOR UNKNOWN INDICATION
  7. ZOLPIDEM TARTRATE [Concomitant]
     Indication: DRUG USE FOR UNKNOWN INDICATION
  8. ASPIRIN [Concomitant]
     Indication: DRUG USE FOR UNKNOWN INDICATION
  9. CELECOXIB [Concomitant]
     Indication: DRUG USE FOR UNKNOWN INDICATION
  10. FUROSEMIDE [Concomitant]
     Indication: DRUG USE FOR UNKNOWN INDICATION
  11. ATENELOL [Concomitant]
     Indication: DRUG USE FOR UNKNOWN INDICATION
  12. ALLOPURINOL [Concomitant]
     Indication: DRUG USE FOR UNKNOWN INDICATION
  13. FOLIC ACID [Concomitant]
     Indication: DRUG USE FOR UNKNOWN INDICATION
  14. M.V.I. [Concomitant]
     Indication: DRUG USE FOR UNKNOWN INDICATION
  15. ADALIMUMAB [Concomitant]
     Indication: DRUG USE FOR UNKNOWN INDICATION

REACTIONS (2)
  - BLOOD GLUCOSE INCREASED [None]
  - FLUSHING [None]
